FAERS Safety Report 12454771 (Version 1)
Quarter: 2016Q2

REPORT INFORMATION
  Report Type: Report from Study
  Country: GB (occurrence: GB)
  Receive Date: 20160610
  Receipt Date: 20160610
  Transmission Date: 20160815
  Serious: Yes (Death, Other)
  Sender: FDA-Public Use
  Company Number: GB-ROCHE-1771705

PATIENT

DRUGS (4)
  1. LEDIPASVIR [Suspect]
     Active Substance: LEDIPASVIR
     Indication: CHRONIC HEPATITIS C
     Route: 065
  2. DACLATASVIR. [Suspect]
     Active Substance: DACLATASVIR
     Indication: CHRONIC HEPATITIS C
     Dosage: DOSE ADJUSTMENT TO 30 MG OR 90 MG PER DAY AS RECOMMENDED.
     Route: 065
  3. RIBAVIRIN. [Suspect]
     Active Substance: RIBAVIRIN
     Indication: CHRONIC HEPATITIS C
     Route: 065
  4. SOFOSBUVIR [Suspect]
     Active Substance: SOFOSBUVIR
     Indication: CHRONIC HEPATITIS C
     Route: 065

REACTIONS (7)
  - Sepsis [Unknown]
  - Hepatic failure [Unknown]
  - Liver disorder [Unknown]
  - Anaemia [Unknown]
  - Hepatocellular carcinoma [Unknown]
  - Death [Fatal]
  - Acute kidney injury [Unknown]
